FAERS Safety Report 10897435 (Version 1)
Quarter: 2015Q1

REPORT INFORMATION
  Report Type: Spontaneous
  Country: US (occurrence: US)
  Receive Date: 20150309
  Receipt Date: 20150309
  Transmission Date: 20150721
  Serious: Yes (Hospitalization)
  Sender: FDA-Public Use
  Company Number: US-SUN PHARMACEUTICAL INDUSTRIES LTD-2015SUN00645

PATIENT

DRUGS (1)
  1. CEPHALEXIN CAPSULES USP 250MG [Suspect]
     Active Substance: CEPHALEXIN
     Indication: OROPHARYNGEAL PAIN
     Dosage: UNK
     Route: 065

REACTIONS (3)
  - Drug reaction with eosinophilia and systemic symptoms [Unknown]
  - Herpes simplex [Unknown]
  - Herpes simplex hepatitis [Unknown]
